FAERS Safety Report 19172354 (Version 1)
Quarter: 2021Q2

REPORT INFORMATION
  Report Type: Spontaneous
  Country: US (occurrence: US)
  Receive Date: 20210422
  Receipt Date: 20210422
  Transmission Date: 20210717
  Serious: Yes (Hospitalization, Other)
  Sender: FDA-Public Use
  Company Number: None

PATIENT
  Age: 24 Year
  Sex: Female
  Weight: 99.79 kg

DRUGS (6)
  1. NEXPLANON [Suspect]
     Active Substance: ETONOGESTREL
  2. BIOTIN [Concomitant]
     Active Substance: BIOTIN
  3. MAGNESIUM [Concomitant]
     Active Substance: MAGNESIUM
  4. MULTIVITAMIN [Concomitant]
     Active Substance: VITAMINS
  5. DUOLOXETINE [Concomitant]
     Active Substance: DULOXETINE
  6. VIT B [Concomitant]
     Active Substance: VITAMIN B

REACTIONS (4)
  - Neoplasm [None]
  - Post procedural complication [None]
  - Abdominal pain [None]
  - Ovarian cyst [None]

NARRATIVE: CASE EVENT DATE: 20200621
